FAERS Safety Report 7141530-1 (Version None)
Quarter: 2010Q4

REPORT INFORMATION
  Report Type: 
  Country: None (occurrence: None)
  Receive Date: 20101119
  Receipt Date: 20100901
  Transmission Date: 20110411
  Serious: Yes (Other)
  Sender: FDA-Public Use
  Company Number: UTC-001273

PATIENT
  Age: 42 Year
  Sex: Female
  Weight: 77 kg

DRUGS (13)
  1. TYVASO [Suspect]
     Indication: PULMONARY HYPERTENSION
     Dosage: 72 MCG (18 MCG, 4 IN 1 D), INHALATION
     Route: 055
     Dates: start: 20100716, end: 20100724
  2. OXYGEN (OXYGEN) [Concomitant]
  3. FUROSEMIDE [Concomitant]
  4. DOXYCYCLINE [Concomitant]
  5. COUMADIN [Concomitant]
  6. NORVASC [Concomitant]
  7. REVATIO [Concomitant]
  8. VENTOLIN HFA (SALBUTAMOL SULFATE) [Concomitant]
  9. SENNA LAX (SENNOSIDE A+B) [Concomitant]
  10. VITAMIN D [Concomitant]
  11. NORCO [Concomitant]
  12. POTASSIUM CHLORIDE [Concomitant]
  13. OMEPRAZOLE [Concomitant]

REACTIONS (1)
  - EPISTAXIS [None]
